FAERS Safety Report 15169179 (Version 1)
Quarter: 2018Q3

REPORT INFORMATION
  Report Type: Spontaneous
  Country: CA (occurrence: CA)
  Receive Date: 20180720
  Receipt Date: 20180720
  Transmission Date: 20181010
  Serious: Yes (Other)
  Sender: FDA-Public Use
  Company Number: CA-AMGEN-CANSP2018098681

PATIENT
  Age: 78 Year
  Sex: Female
  Weight: 78 kg

DRUGS (1)
  1. FILGRASTIM [Suspect]
     Active Substance: FILGRASTIM
     Indication: BREAST CANCER
     Dosage: 1 DF, QD
     Route: 065

REACTIONS (14)
  - Electrolyte imbalance [Unknown]
  - Infection [Unknown]
  - Nausea [Unknown]
  - Dysphagia [Unknown]
  - Constipation [Unknown]
  - Diarrhoea [Unknown]
  - Asthenia [Unknown]
  - Fatigue [Unknown]
  - Dysgeusia [Unknown]
  - Diverticulitis [Unknown]
  - Dehydration [Unknown]
  - Pyrexia [Unknown]
  - Glomerular filtration rate decreased [Unknown]
  - Hypokalaemia [Unknown]
